FAERS Safety Report 9641242 (Version 1)
Quarter: 2013Q4

REPORT INFORMATION
  Report Type: Spontaneous
  Country: US (occurrence: None)
  Receive Date: 20131022
  Receipt Date: 20131022
  Transmission Date: 20140711
  Serious: Yes (Hospitalization)
  Sender: FDA-Public Use
  Company Number: None

PATIENT
  Age: 67 None
  Sex: Male

DRUGS (2)
  1. LISINOPRIL [Suspect]
     Indication: HYPERTENSION
     Route: 048
     Dates: start: 20100217, end: 20130806
  2. POTASSIUM CHLORIDE [Suspect]
     Indication: HYPERTENSION
     Dosage: 20 MEQ, TID, PO
     Route: 048
     Dates: end: 20130806

REACTIONS (2)
  - Hyperkalaemia [None]
  - Renal failure acute [None]
